FAERS Safety Report 8481551-X (Version None)
Quarter: 2012Q2

REPORT INFORMATION
  Report Type: 
  Country: None (occurrence: None)
  Receive Date: 20120619
  Receipt Date: 20120606
  Transmission Date: 20120825
  Serious: Yes (Death, Hospitalization)
  Sender: FDA-Public Use
  Company Number: 2009-04608

PATIENT
  Age: 38 Year
  Sex: Male

DRUGS (7)
  1. DEXAMETHASONE [Suspect]
     Indication: MULTIPLE MYELOMA
     Dosage: 4 MG, ORAL;
     Dates: start: 20090703, end: 20090829
  2. DEXAMETHASONE [Suspect]
     Indication: MULTIPLE MYELOMA
     Dosage: 4 MG, ORAL;
     Dates: start: 20090902
  3. CISPLATIN [Suspect]
     Indication: MULTIPLE MYELOMA
     Dates: start: 20090902
  4. CAELYX (DOXORUBICIN) INJECTION [Concomitant]
     Indication: MULTIPLE MYELOMA
     Dosage: 63 MG, INTRAVENOUS
     Route: 042
     Dates: start: 20090703, end: 20090829
  5. CYCLOPHOSPHAMIDE [Suspect]
     Indication: MULTIPLE MYELOMA
     Dates: start: 20090902
  6. ETOPOSIDE [Suspect]
     Dates: start: 20090902
  7. VELCADE [Suspect]
     Indication: MULTIPLE MYELOMA
     Dosage: 2.7 MG, INTRAVENOUS
     Route: 042
     Dates: start: 20090703, end: 20090829

REACTIONS (3)
  - INFLUENZA [None]
  - MULTIPLE MYELOMA [None]
  - TUMOUR LYSIS SYNDROME [None]
